FAERS Safety Report 18876006 (Version 1)
Quarter: 2021Q1

REPORT INFORMATION
  Report Type: Spontaneous
  Country: US (occurrence: US)
  Receive Date: 20210211
  Receipt Date: 20210211
  Transmission Date: 20210420
  Serious: No
  Sender: FDA-Public Use
  Company Number: US-009507513-2102USA000696

PATIENT
  Age: 15 Year
  Sex: Female
  Weight: 65.31 kg

DRUGS (2)
  1. NEXPLANON [Suspect]
     Active Substance: ETONOGESTREL
     Dosage: 68 MILLIGRAM ONCE
  2. NEXPLANON [Suspect]
     Active Substance: ETONOGESTREL
     Dosage: 1 IMPLANT, IN LEFT UPPER ARM
     Route: 059
     Dates: start: 20210128

REACTIONS (3)
  - Device kink [Recovered/Resolved]
  - Complication of device insertion [Recovered/Resolved]
  - No adverse event [Unknown]

NARRATIVE: CASE EVENT DATE: 20210128
